FAERS Safety Report 6994247-8 (Version None)
Quarter: 2010Q3

REPORT INFORMATION
  Report Type: 
  Country: None (occurrence: None)
  Receive Date: 20100917
  Receipt Date: 20070604
  Transmission Date: 20110219
  Serious: No
  Sender: FDA-Public Use
  Company Number: US-ASTRAZENECA-2008UW21853

PATIENT
  Age: 40 Year
  Sex: Male
  Weight: 105.2 kg

DRUGS (25)
  1. SEROQUEL [Suspect]
     Indication: SCHIZOPHRENIA, PARANOID TYPE
     Dosage: 60MG TO 1000MG AM AND PM
     Route: 048
     Dates: start: 20011009
  2. SEROQUEL [Suspect]
     Dosage: 100MG-1200MG
     Route: 048
     Dates: start: 20020424
  3. ABILIFY [Concomitant]
     Route: 048
  4. ATIVAN [Concomitant]
     Dosage: 1MG - 8MG
     Route: 048
  5. ALBUTEROL [Concomitant]
  6. CARDIZEM [Concomitant]
  7. LIPITOR [Concomitant]
     Dates: start: 20011106
  8. PEPCID [Concomitant]
  9. TRAZODONE HCL [Concomitant]
  10. LASIX [Concomitant]
  11. ADVAIR DISKUS 100/50 [Concomitant]
  12. NICOTINE TRANSDERMAL [Concomitant]
     Dates: start: 20040101
  13. ZYPREXA [Concomitant]
  14. TAGAMET [Concomitant]
  15. IBUPROFEN [Concomitant]
  16. HALDOL [Concomitant]
     Dates: start: 19930101
  17. BENADRYL [Concomitant]
  18. CLOZAPINE [Concomitant]
  19. PHENOBARBITAL [Concomitant]
     Dates: start: 19930101
  20. GEODON [Concomitant]
  21. PROTONIX [Concomitant]
  22. DEPAKOTE [Concomitant]
  23. DILTIAZEM [Concomitant]
     Dosage: 120MG-180MG
     Dates: start: 20011106
  24. ATENOLOL [Concomitant]
     Dates: start: 20020515
  25. PRAVACHOL [Concomitant]
     Dates: start: 20020717

REACTIONS (8)
  - CHRONIC OBSTRUCTIVE PULMONARY DISEASE [None]
  - DYSPNOEA [None]
  - GRAVITATIONAL OEDEMA [None]
  - HEPATIC ENZYME INCREASED [None]
  - HYPERTRIGLYCERIDAEMIA [None]
  - INCONTINENCE [None]
  - PALPITATIONS [None]
  - RECTAL HAEMORRHAGE [None]
